FAERS Safety Report 5402509-0 (Version None)
Quarter: 2007Q3

REPORT INFORMATION
  Report Type: 
  Country: None (occurrence: None)
  Receive Date: 20070801
  Receipt Date: 20060831
  Transmission Date: 20080115
  Serious: No
  Sender: FDA-Public Use
  Company Number: A0619033A

PATIENT
  Sex: Female

DRUGS (1)
  1. IMITREX [Suspect]
     Indication: MIGRAINE
     Route: 048

REACTIONS (2)
  - DRUG HYPERSENSITIVITY [None]
  - EYELID OEDEMA [None]
